FAERS Safety Report 5294433-1 (Version None)
Quarter: 2007Q2

REPORT INFORMATION
  Report Type: 
  Country: None (occurrence: None)
  Receive Date: 20070412
  Receipt Date: 20070328
  Transmission Date: 20071010
  Serious: Yes (Other)
  Sender: FDA-Public Use
  Company Number: PHEH2007US00745

PATIENT
  Age: 46 Year
  Sex: Female

DRUGS (3)
  1. ZELNORM [Suspect]
     Indication: IRRITABLE BOWEL SYNDROME
     Dosage: 6 MG, BID
     Route: 048
     Dates: start: 20061219, end: 20061227
  2. ZELNORM [Suspect]
     Dosage: 6 MG, BID
     Route: 048
     Dates: start: 20061216, end: 20061218
  3. ZELNORM [Suspect]
     Dosage: 6 MG, BID
     Route: 048
     Dates: start: 20070115, end: 20070121

REACTIONS (8)
  - ACUTE SINUSITIS [None]
  - AGITATION [None]
  - DEAFNESS [None]
  - EAR CONGESTION [None]
  - INFLUENZA LIKE ILLNESS [None]
  - PRURITUS [None]
  - SOMNOLENCE [None]
  - TINNITUS [None]
